FAERS Safety Report 6856496-9 (Version None)
Quarter: 2010Q3

REPORT INFORMATION
  Report Type: 
  Country: None (occurrence: None)
  Receive Date: 20100719
  Receipt Date: 20100705
  Transmission Date: 20110219
  Serious: Yes (Hospitalization)
  Sender: FDA-Public Use
  Company Number: IT-ROCHE-713273

PATIENT
  Sex: Male

DRUGS (2)
  1. PEGASYS [Suspect]
     Route: 030
     Dates: start: 20091001, end: 20100622
  2. COPEGUS [Concomitant]
     Route: 048
     Dates: start: 20091001, end: 20100703

REACTIONS (3)
  - AKATHISIA [None]
  - HALLUCINATION [None]
  - PSYCHOTIC DISORDER [None]
